FAERS Safety Report 19055717 (Version 1)
Quarter: 2021Q1

REPORT INFORMATION
  Report Type: Spontaneous
  Country: US (occurrence: US)
  Receive Date: 20210325
  Receipt Date: 20210325
  Transmission Date: 20210420
  Serious: Yes (Other)
  Sender: FDA-Public Use
  Company Number: US-ASTELLAS-2021US010402

PATIENT
  Age: 69 Year
  Sex: Male

DRUGS (1)
  1. MYRBETRIQ [Suspect]
     Active Substance: MIRABEGRON
     Indication: BLADDER SPASM
     Route: 065
     Dates: start: 202103

REACTIONS (4)
  - Bladder pain [Unknown]
  - Product use in unapproved indication [Unknown]
  - Prostate cancer [Unknown]
  - Dry mouth [Unknown]

NARRATIVE: CASE EVENT DATE: 202103
